FAERS Safety Report 19983903 (Version 1)
Quarter: 2021Q4

REPORT INFORMATION
  Report Type: Spontaneous
  Country: US (occurrence: US)
  Receive Date: 20211021
  Receipt Date: 20211021
  Transmission Date: 20220303
  Serious: Yes (Hospitalization)
  Sender: FDA-Public Use
  Company Number: None

PATIENT
  Age: 52 Year
  Sex: Female
  Weight: 45.45 kg

DRUGS (2)
  1. CARBOPLATIN [Suspect]
     Active Substance: CARBOPLATIN
     Dates: end: 20210923
  2. TAXOL [Suspect]
     Active Substance: PACLITAXEL
     Dates: end: 20210923

REACTIONS (7)
  - Muscle spasms [None]
  - Defaecation urgency [None]
  - Abdominal pain [None]
  - Nausea [None]
  - Vomiting [None]
  - Diarrhoea [None]
  - Haematochezia [None]

NARRATIVE: CASE EVENT DATE: 20210930
